FAERS Safety Report 9603191 (Version 1)
Quarter: 2013Q4

REPORT INFORMATION
  Report Type: Spontaneous
  Country: FR (occurrence: FR)
  Receive Date: 20131007
  Receipt Date: 20131007
  Transmission Date: 20140711
  Serious: Yes (Death, Hospitalization, Other)
  Sender: FDA-Public Use
  Company Number: FR-TEVA-434983ISR

PATIENT
  Age: 72 Year
  Sex: Male
  Weight: 53 kg

DRUGS (12)
  1. SODIUM PAMIDRONATE RATIOPHARM [Suspect]
     Dosage: 60 MILLIGRAM DAILY; INFUSION
     Dates: start: 20121213, end: 20121213
  2. SODIUM PAMIDRONATE RATIOPHARM [Suspect]
     Dosage: 60 MILLIGRAM DAILY; INFUSION
     Dates: start: 20130111, end: 20130111
  3. SODIUM PAMIDRONATE RATIOPHARM [Suspect]
     Dosage: 30 MILLIGRAM DAILY; INFUSION
     Dates: start: 20130425, end: 20130425
  4. INEXIUM 20 MG [Suspect]
     Dosage: 20 MILLIGRAM DAILY;
     Route: 048
  5. REVLIMID 5 MG CELGENE [Suspect]
     Dosage: 5 MILLIGRAM DAILY;
     Route: 048
  6. MEDROL [Suspect]
  7. TRIATEC [Concomitant]
     Dosage: 5 MILLIGRAM DAILY;
     Route: 048
  8. ARANESP [Concomitant]
  9. CALCIDIA [Concomitant]
     Dosage: 3 DOSAGE FORMS DAILY;
  10. DOLIPRANE 1000 MG [Concomitant]
     Dosage: 3 DOSAGE FORMS DAILY;
  11. TARDYFERON 80 MG [Concomitant]
     Route: 048
  12. KEPPRA 250 MG [Concomitant]
     Dosage: 500 MILLIGRAM DAILY;

REACTIONS (6)
  - Hypocalcaemia [Recovered/Resolved]
  - Muscle spasms [Recovered/Resolved]
  - Electrocardiogram QT prolonged [Unknown]
  - General physical condition abnormal [Unknown]
  - Sepsis [Fatal]
  - Subcutaneous abscess [Unknown]
